FAERS Safety Report 15218373 (Version 1)
Quarter: 2018Q3

REPORT INFORMATION
  Report Type: Spontaneous
  Country: US (occurrence: US)
  Receive Date: 20180730
  Receipt Date: 20180730
  Transmission Date: 20181010
  Serious: Yes (Life-Threatening, Hospitalization, Other)
  Sender: FDA-Public Use
  Company Number: US-ALEMBIC PHARMACUETICALS LIMITED-2018SCAL000549

PATIENT

DRUGS (1)
  1. METOPROLOL TARTRATE. [Suspect]
     Active Substance: METOPROLOL TARTRATE
     Indication: PRODUCT USED FOR UNKNOWN INDICATION
     Dosage: UNK

REACTIONS (11)
  - Suicide attempt [Unknown]
  - Unresponsive to stimuli [Unknown]
  - Hypothermia [Unknown]
  - Intentional overdose [Unknown]
  - Depressed level of consciousness [Unknown]
  - Decorticate posture [Unknown]
  - Coma scale abnormal [Unknown]
  - Toxicity to various agents [Unknown]
  - Cardiac failure acute [Unknown]
  - Bradycardia [Unknown]
  - Blood pressure abnormal [Unknown]
